FAERS Safety Report 4627116-9 (Version None)
Quarter: 2005Q1

REPORT INFORMATION
  Report Type: 
  Country: None (occurrence: None)
  Receive Date: 20050331
  Receipt Date: 20050318
  Transmission Date: 20050727
  Serious: Yes (Hospitalization, Other)
  Sender: FDA-Public Use
  Company Number: 2005046944

PATIENT
  Age: 59 Year
  Sex: Male
  Weight: 77.1115 kg

DRUGS (7)
  1. BEXTRA [Suspect]
     Indication: RHEUMATOID ARTHRITIS
     Dosage: 20 MG (20 MG, 1 IN 1 D), ORAL
     Route: 048
     Dates: start: 20040101
  2. XANAX [Suspect]
     Indication: ANXIETY
     Dosage: UNK (1 D), ORAL
     Route: 048
     Dates: start: 19900101
  3. DILANTIN [Suspect]
     Indication: CONVULSION
     Dosage: 500 MG (1 D), ORAL
     Route: 048
     Dates: start: 19750101
  4. NEURONTIN [Suspect]
     Indication: CONVERSION DISORDER
     Dosage: UNKNOWN, ORAL
     Route: 048
     Dates: start: 19980101
  5. METHADONE (METHADONE) [Suspect]
     Indication: PAIN
     Dosage: UNKNOWN
     Route: 065
  6. TOPIRAMATE [Suspect]
     Indication: CONVULSION
     Dosage: UNKNOWN
     Route: 065
     Dates: start: 20040101
  7. AXOTAL (OLD FORM) (BUTALBITAL, CAFFEINE, PARACETAMOL) [Concomitant]

REACTIONS (10)
  - AGGRESSION [None]
  - ANTICONVULSANT DRUG LEVEL DECREASED [None]
  - BLOOD PRESSURE INCREASED [None]
  - CHEST PAIN [None]
  - CHOKING SENSATION [None]
  - DRUG EFFECT DECREASED [None]
  - DRUG INTERACTION [None]
  - FLATULENCE [None]
  - GASTRITIS [None]
  - THROAT TIGHTNESS [None]
